FAERS Safety Report 5241172-9 (Version None)
Quarter: 2007Q1

REPORT INFORMATION
  Report Type: 
  Country: None (occurrence: None)
  Receive Date: 20070220
  Receipt Date: 20070208
  Transmission Date: 20070707
  Serious: Yes (Other)
  Sender: FDA-Public Use
  Company Number: JP-JNJFOC-20061201663

PATIENT
  Sex: Female
  Weight: 60 kg

DRUGS (12)
  1. REMICADE [Suspect]
     Route: 042
  2. REMICADE [Suspect]
     Dosage: SIX INFUSIONS ON UNKNOWN DATES
     Route: 042
  3. REMICADE [Suspect]
     Dosage: SIX INFUSIONS ON UNKNOWN DATES
     Route: 042
  4. REMICADE [Suspect]
     Dosage: SIX INFUSIONS ON UNKNOWN DATES
     Route: 042
  5. REMICADE [Suspect]
     Dosage: SIX INFUSIONS ON UNKNOWN DATES
     Route: 042
  6. REMICADE [Suspect]
     Dosage: SIX INFUSIONS ON UNKNOWN DATES
     Route: 042
  7. REMICADE [Suspect]
     Indication: RHEUMATOID ARTHRITIS
     Dosage: SIX INFUSIONS ON UNKNOWN DATES
     Route: 042
  8. NEOISCOTIN [Suspect]
     Indication: ANTIBIOTIC PROPHYLAXIS
     Route: 048
  9. RHEUMATREX [Suspect]
     Route: 048
  10. RHEUMATREX [Suspect]
     Route: 048
  11. RHEUMATREX [Suspect]
     Indication: RHEUMATOID ARTHRITIS
     Route: 048
  12. FOLIAMIN [Concomitant]
     Route: 048

REACTIONS (3)
  - BLOOD PRESSURE DECREASED [None]
  - INFUSION RELATED REACTION [None]
  - TREMOR [None]
